FAERS Safety Report 7993957-3 (Version None)
Quarter: 2011Q4

REPORT INFORMATION
  Report Type: 
  Country: None (occurrence: None)
  Receive Date: 20111220
  Receipt Date: 20111208
  Transmission Date: 20120403
  Serious: Yes (Other)
  Sender: FDA-Public Use
  Company Number: US-BAYER-2011-118228

PATIENT
  Sex: Female

DRUGS (2)
  1. DROSPIRENONE AND ETHINYL ESTRADIOL [Suspect]
     Dosage: UNK
     Route: 048
     Dates: start: 20080701, end: 20100301
  2. YASMIN [Suspect]
     Dosage: UNK
     Route: 048
     Dates: start: 20060901, end: 20080601

REACTIONS (2)
  - CHOLELITHIASIS [None]
  - INJURY [None]
